FAERS Safety Report 7682781-7 (Version None)
Quarter: 2011Q3

REPORT INFORMATION
  Report Type: 
  Country: None (occurrence: None)
  Receive Date: 20110815
  Receipt Date: 20110805
  Transmission Date: 20111222
  Serious: Yes (Life-Threatening, Hospitalization, Other)
  Sender: FDA-Public Use
  Company Number: JP-ROCHE-719555

PATIENT
  Sex: Female
  Weight: 38 kg

DRUGS (18)
  1. AVASTIN [Suspect]
     Indication: LUNG ADENOCARCINOMA METASTATIC
     Route: 041
     Dates: start: 20100625, end: 20100721
  2. PREDNISOLONE [Suspect]
     Indication: RHEUMATOID ARTHRITIS
     Dosage: PREDOHAN(PREDNISOLONE)
     Route: 048
     Dates: end: 20100625
  3. FERROUS CITRATE [Concomitant]
     Route: 048
  4. LANSOPRAZOLE [Concomitant]
     Route: 048
     Dates: end: 20100730
  5. LEVOFLOXACIN [Concomitant]
     Route: 048
  6. LANSOPRAZOLE [Concomitant]
     Route: 048
     Dates: start: 20100806
  7. VOLTAREN [Suspect]
     Indication: RHEUMATOID ARTHRITIS
     Route: 054
     Dates: end: 20100622
  8. ISONIAZID [Concomitant]
     Route: 048
  9. CLARITHROMYCIN [Concomitant]
     Route: 048
  10. LORCAM [Suspect]
     Indication: RHEUMATOID ARTHRITIS
     Route: 048
     Dates: end: 20100621
  11. EVISTA [Concomitant]
  12. PLETAL [Concomitant]
     Route: 048
  13. PREDNISOLONE [Suspect]
     Indication: RHEUMATOID ARTHRITIS
     Route: 048
     Dates: start: 20100625
  14. PARAPLATIN [Suspect]
     Indication: LUNG ADENOCARCINOMA METASTATIC
     Route: 041
     Dates: start: 20100625, end: 20100721
  15. ALIMTA [Suspect]
     Indication: LUNG ADENOCARCINOMA METASTATIC
     Route: 041
     Dates: start: 20100625, end: 20100721
  16. ACTEMRA [Suspect]
     Indication: RHEUMATOID ARTHRITIS
     Dosage: NOTE: DOSAGE IS UNCERTAIN
     Route: 041
     Dates: start: 20080807
  17. PYDOXAL [Concomitant]
     Route: 048
  18. PURSENNID [Concomitant]
     Route: 048

REACTIONS (15)
  - STAPHYLOCOCCAL INFECTION [None]
  - GASTRITIS [None]
  - GASTROINTESTINAL PERFORATION [None]
  - SMALL INTESTINE ULCER [None]
  - TACHYCARDIA [None]
  - PLEURAL EFFUSION [None]
  - PYREXIA [None]
  - ILEAL PERFORATION [None]
  - BLOOD UREA INCREASED [None]
  - INFECTIOUS PERITONITIS [None]
  - ATRIAL FIBRILLATION [None]
  - CARDIAC FAILURE [None]
  - DIARRHOEA [None]
  - C-REACTIVE PROTEIN INCREASED [None]
  - GASTROINTESTINAL AMYLOIDOSIS [None]
